FAERS Safety Report 4592856-7 (Version None)
Quarter: 2005Q1

REPORT INFORMATION
  Report Type: 
  Country: None (occurrence: None)
  Receive Date: 20050228
  Receipt Date: 20050215
  Transmission Date: 20050727
  Serious: Yes (Life-Threatening)
  Sender: FDA-Public Use
  Company Number: JP-ROCHE-396175

PATIENT
  Age: 30 Year
  Sex: Male

DRUGS (5)
  1. TAMIFLU [Suspect]
     Route: 048
     Dates: start: 20050209, end: 20050209
  2. MUCOSTA [Concomitant]
     Route: 048
  3. CALONAL [Concomitant]
     Route: 048
  4. FOSMICIN [Concomitant]
     Route: 065
  5. UNSPECIFIED DRUG [Concomitant]
     Dosage: DRUG STATED AS ^PLEVITA S^

REACTIONS (1)
  - RESPIRATORY ARREST [None]
